FAERS Safety Report 4528379-0 (Version None)
Quarter: 2004Q4

REPORT INFORMATION
  Report Type: 
  Country: None (occurrence: None)
  Receive Date: 20041216
  Receipt Date: 20041202
  Transmission Date: 20050328
  Serious: Yes (Life-Threatening)
  Sender: FDA-Public Use
  Company Number: FR-JNJFOC-20041200965

PATIENT
  Age: 46 Year
  Sex: Female

DRUGS (3)
  1. REMICADE [Suspect]
     Indication: PYODERMA GANGRENOSUM
     Dosage: THE 11TH AND FINAL DOSE WAS ADMINISTERED ON 28-JUL-2004.
     Route: 042
  2. PREDNISONE TAB [Suspect]
     Indication: PYODERMA GANGRENOSUM
     Route: 049
  3. VERCYTE [Concomitant]
     Indication: THROMBOCYTOPENIA
     Route: 049

REACTIONS (12)
  - CYTOLYTIC HEPATITIS [None]
  - HYPOXIA [None]
  - IMMUNOSUPPRESSION [None]
  - INTERSTITIAL LUNG DISEASE [None]
  - LEGIONELLA INFECTION [None]
  - PNEUMONIA [None]
  - PNEUMONIA LEGIONELLA [None]
  - RENAL FAILURE [None]
  - RESPIRATORY DISTRESS [None]
  - SEPSIS [None]
  - SUPERINFECTION [None]
  - TRANSAMINASES INCREASED [None]
